FAERS Safety Report 4897791-2 (Version None)
Quarter: 2006Q1

REPORT INFORMATION
  Report Type: 
  Country: None (occurrence: None)
  Receive Date: 20060130
  Receipt Date: 20060118
  Transmission Date: 20060701
  Serious: Yes (Other)
  Sender: FDA-Public Use
  Company Number: HQWYE492615SEP05

PATIENT
  Age: 76 Year
  Sex: Female
  Weight: 74.46 kg

DRUGS (1)
  1. PREMARIN [Suspect]
     Indication: HYSTERECTOMY

REACTIONS (1)
  - MENINGIOMA BENIGN [None]
